FAERS Safety Report 25363211 (Version 1)
Quarter: 2025Q2

REPORT INFORMATION
  Report Type: Spontaneous
  Country: US (occurrence: None)
  Receive Date: 20250527
  Receipt Date: 20250527
  Transmission Date: 20250717
  Serious: Yes (Hospitalization)
  Sender: FDA-CTU
  Company Number: None

PATIENT
  Age: 42 Year
  Sex: Male
  Weight: 74.4 kg

DRUGS (1)
  1. ICODEXTRIN [Suspect]
     Active Substance: ICODEXTRIN

REACTIONS (1)
  - Streptococcus test positive [None]

NARRATIVE: CASE EVENT DATE: 20250513
